FAERS Safety Report 6517236-6 (Version None)
Quarter: 2009Q4

REPORT INFORMATION
  Report Type: 
  Country: None (occurrence: None)
  Receive Date: 20091217
  Receipt Date: 20090921
  Transmission Date: 20100525
  Serious: Yes (Other)
  Sender: FDA-Public Use
  Company Number: 658308

PATIENT
  Age: 8 Year
  Sex: Male
  Weight: 25.9 kg

DRUGS (2)
  1. TAMIFLU [Suspect]
     Indication: INFLUENZA LIKE ILLNESS
     Dosage: 75 MG 2 PER 1 DAY ORAL
     Route: 048
     Dates: start: 20090914, end: 20090915
  2. TYLENOL [Concomitant]

REACTIONS (1)
  - ERYTHEMA MULTIFORME [None]
